FAERS Safety Report 18324013 (Version 1)
Quarter: 2020Q3

REPORT INFORMATION
  Report Type: Report from Study
  Country: GB (occurrence: GB)
  Receive Date: 20200928
  Receipt Date: 20200928
  Transmission Date: 20201103
  Serious: Yes (Other)
  Sender: FDA-Public Use
  Company Number: GB-TAKEDA-2020TUS040101

PATIENT
  Sex: Male
  Weight: 85 kg

DRUGS (1)
  1. IXAZOMIB [Suspect]
     Active Substance: IXAZOMIB
     Indication: PLASMA CELL MYELOMA
     Dosage: 4 MILLIGRAM
     Route: 048
     Dates: start: 20180314, end: 20200826

REACTIONS (8)
  - Anxiety [Unknown]
  - Constipation [Recovered/Resolved]
  - Spinal compression fracture [Unknown]
  - Nausea [Recovered/Resolved]
  - Hyperhidrosis [Unknown]
  - Decreased appetite [Unknown]
  - Plasma cell myeloma [Unknown]
  - Asthenia [Unknown]
